FAERS Safety Report 21018394 (Version 2)
Quarter: 2022Q3

REPORT INFORMATION
  Report Type: Spontaneous
  Country: US (occurrence: US)
  Receive Date: 20220628
  Receipt Date: 20220825
  Transmission Date: 20221026
  Serious: No
  Sender: FDA-Public Use
  Company Number: US-PFIZER INC-202200894415

PATIENT
  Age: 47 Year
  Sex: Female
  Weight: 63.5 kg

DRUGS (3)
  1. PAXLOVID [Suspect]
     Active Substance: NIRMATRELVIR\RITONAVIR
     Indication: COVID-19 treatment
     Dosage: [PF-07321332 300 MG]/[RITONAVIR 100 MG]; 2X/DAY
     Dates: start: 20220622
  2. PREDNISONE [Concomitant]
     Active Substance: PREDNISONE
     Indication: Streptococcal infection
     Dosage: 4 MG
     Dates: start: 20220622
  3. KEFLEX [Concomitant]
     Active Substance: CEPHALEXIN
     Indication: Streptococcal infection
     Dosage: 500 MG, 3X/DAY
     Dates: start: 20220620

REACTIONS (20)
  - Taste disorder [Recovered/Resolved]
  - Musculoskeletal chest pain [Recovered/Resolved]
  - Diarrhoea [Not Recovered/Not Resolved]
  - Fatigue [Unknown]
  - Flushing [Recovered/Resolved]
  - Erythema [Recovered/Resolved]
  - Confusional state [Recovering/Resolving]
  - Aphasia [Recovering/Resolving]
  - Thinking abnormal [Recovering/Resolving]
  - Arthropathy [Unknown]
  - Muscular weakness [Unknown]
  - Blood pressure increased [Unknown]
  - Balance disorder [Unknown]
  - Dizziness [Unknown]
  - Asthenia [Unknown]
  - Tremor [Unknown]
  - Anxiety [Unknown]
  - Headache [Unknown]
  - Hypersensitivity [Unknown]
  - Skin warm [Recovered/Resolved]

NARRATIVE: CASE EVENT DATE: 20220601
